FAERS Safety Report 6425899-9 (Version None)
Quarter: 2009Q4

REPORT INFORMATION
  Report Type: 
  Country: None (occurrence: None)
  Receive Date: 20091030
  Receipt Date: 20091016
  Transmission Date: 20100525
  Serious: Yes (Hospitalization, Other)
  Sender: FDA-Public Use
  Company Number: 2009AC000272

PATIENT
  Age: 65 Year
  Sex: Male

DRUGS (17)
  1. DIGOXIN [Suspect]
     Dosage: 0.25 MG;QD;PO
     Route: 048
     Dates: start: 20060601, end: 20080501
  2. TAUROCYAMIN [Concomitant]
  3. DEMADEX [Concomitant]
  4. ZAROXOLYN [Concomitant]
  5. K-DUR [Concomitant]
  6. VITAMIN B-12 [Concomitant]
  7. FOLIC ACID [Concomitant]
  8. ASPIRIN [Concomitant]
  9. TOPROL-XL [Concomitant]
  10. HYDROCODONE [Concomitant]
  11. ZETIA [Concomitant]
  12. PRIMARIA [Concomitant]
  13. NORTRIPTYLINE [Concomitant]
  14. PAXIL [Concomitant]
  15. FLOMAX [Concomitant]
  16. ISOSORBIDE [Concomitant]
  17. ENALAPRIL [Concomitant]

REACTIONS (7)
  - BRAIN NATRIURETIC PEPTIDE INCREASED [None]
  - ECONOMIC PROBLEM [None]
  - GOUTY TOPHUS [None]
  - ILL-DEFINED DISORDER [None]
  - INJURY [None]
  - RENAL COLIC [None]
  - SUBDURAL HAEMATOMA [None]
